APPROVED DRUG PRODUCT: RANITIDINE HYDROCHLORIDE
Active Ingredient: RANITIDINE HYDROCHLORIDE
Strength: EQ 300MG BASE
Dosage Form/Route: CAPSULE;ORAL
Application: A074655 | Product #002 | TE Code: AB
Applicant: SANDOZ INC
Approved: Oct 22, 1997 | RLD: No | RS: Yes | Type: RX